FAERS Safety Report 16705985 (Version 7)
Quarter: 2022Q1

REPORT INFORMATION
  Report Type: Report from Study
  Country: PA (occurrence: PA)
  Receive Date: 20190815
  Receipt Date: 20220114
  Transmission Date: 20220424
  Serious: Yes (Death, Hospitalization, Other)
  Sender: FDA-Public Use
  Company Number: PA-002147023-PHHY2019PA172665

PATIENT

DRUGS (14)
  1. RUXOLITINIB [Suspect]
     Active Substance: RUXOLITINIB
     Indication: Product used for unknown indication
     Dosage: 15 MG, UNK
     Route: 065
     Dates: start: 2017, end: 2018
  2. RUXOLITINIB [Suspect]
     Active Substance: RUXOLITINIB
     Dosage: 20 MG, QD (2 IN THE MORNING AND 2 IN THE AFTERNOON)
     Route: 065
     Dates: start: 20190801
  3. RUXOLITINIB [Suspect]
     Active Substance: RUXOLITINIB
     Dosage: 15 MG, UNK
     Route: 065
  4. RUXOLITINIB [Suspect]
     Active Substance: RUXOLITINIB
     Dosage: 5 MG
     Route: 065
  5. RUXOLITINIB [Suspect]
     Active Substance: RUXOLITINIB
     Dosage: 15 MG, BID
     Route: 065
  6. PREDNISOLONE [Suspect]
     Active Substance: PREDNISOLONE
     Indication: Product used for unknown indication
     Dosage: 1 DF, QD (1 OF 5 MG)
     Route: 065
  7. INSULIN NOS [Concomitant]
     Active Substance: INSULIN NOS
     Indication: Blood glucose increased
     Dosage: UNK
     Route: 065
  8. ACYCLOVIR [Concomitant]
     Active Substance: ACYCLOVIR
     Indication: Herpes virus infection
     Dosage: UNK
     Route: 065
  9. URSODIOL [Concomitant]
     Active Substance: URSODIOL
     Indication: Liver disorder
     Dosage: 2 DF, QD
     Route: 065
  10. CELLCEPT [Concomitant]
     Active Substance: MYCOPHENOLATE MOFETIL
     Indication: Product used for unknown indication
     Dosage: 1 DF, QD
     Route: 065
  11. CELLCEPT [Concomitant]
     Active Substance: MYCOPHENOLATE MOFETIL
     Dosage: 3 DF, QD
     Route: 065
  12. FISH OIL [Concomitant]
     Active Substance: FISH OIL
     Indication: Blood cholesterol abnormal
     Dosage: 1 DF, QD
     Route: 065
  13. HYDROXYUREA [Concomitant]
     Active Substance: HYDROXYUREA
     Indication: Product used for unknown indication
     Dosage: 1 DF, Q8H
     Route: 065
  14. FOLIC ACID;MAGNESIUM HYDROXIDE;MATRICARIA RECUTITA;PLANTAGO PSYLLIUM;P [Concomitant]
     Indication: Product used for unknown indication
     Route: 065

REACTIONS (22)
  - Acute myeloid leukaemia [Fatal]
  - Nasopharyngitis [Unknown]
  - Pyrexia [Unknown]
  - Spleen disorder [Unknown]
  - Blood creatinine increased [Unknown]
  - Skin discolouration [Unknown]
  - White blood cell count increased [Unknown]
  - Platelet count decreased [Unknown]
  - Feeling abnormal [Unknown]
  - Cardiac failure [Fatal]
  - Abdominal pain [Unknown]
  - Fluid imbalance [Unknown]
  - Flatulence [Unknown]
  - Malaise [Unknown]
  - Pneumonia [Unknown]
  - Haemoglobin decreased [Unknown]
  - Septic shock [Fatal]
  - Respiratory failure [Fatal]
  - Cough [Recovering/Resolving]
  - Multi-organ disorder [Unknown]
  - Pleural effusion [Unknown]
  - Asthenia [Unknown]

NARRATIVE: CASE EVENT DATE: 20200617
